FAERS Safety Report 7287575-2 (Version None)
Quarter: 2011Q1

REPORT INFORMATION
  Report Type: 
  Country: None (occurrence: None)
  Receive Date: 20110211
  Receipt Date: 20110201
  Transmission Date: 20110831
  Serious: Yes (Other)
  Sender: FDA-Public Use
  Company Number: US-JNJFOC-20100109571

PATIENT
  Sex: Female
  Weight: 56.7 kg

DRUGS (11)
  1. REMICADE [Suspect]
     Route: 042
  2. REMICADE [Suspect]
     Route: 042
  3. ANTIBIOTICS [Concomitant]
     Indication: CROHN'S DISEASE
  4. RIFAMPIN [Concomitant]
     Indication: CROHN'S DISEASE
  5. NARCOTIC ANALGESICS, NOS [Concomitant]
     Indication: CROHN'S DISEASE
  6. REMICADE [Suspect]
     Route: 042
  7. REMICADE [Suspect]
     Route: 042
  8. CELLCEPT [Concomitant]
     Indication: CROHN'S DISEASE
  9. ADALIMUMAB [Concomitant]
     Indication: CROHN'S DISEASE
  10. REMICADE [Suspect]
     Indication: CROHN'S DISEASE
     Dosage: 3 INFUSIONS PRIOR TO BASELINE
     Route: 042
  11. REMICADE [Suspect]
     Route: 042

REACTIONS (2)
  - FISTULA [None]
  - ANAEMIA [None]
